FAERS Safety Report 23652466 (Version 1)
Quarter: 2024Q1

REPORT INFORMATION
  Report Type: Spontaneous
  Country: US (occurrence: None)
  Receive Date: 20240320
  Receipt Date: 20240320
  Transmission Date: 20240410
  Serious: No
  Sender: FDA-Public Use
  Company Number: 2024A051437

PATIENT
  Sex: Female

DRUGS (1)
  1. FULVESTRANT [Suspect]
     Active Substance: FULVESTRANT
     Route: 030

REACTIONS (5)
  - Tendon disorder [Unknown]
  - Muscle injury [Recovered/Resolved]
  - Injection site pain [Recovered/Resolved]
  - Plantar fasciitis [Unknown]
  - Tenosynovitis [Unknown]
